FAERS Safety Report 5235914-6 (Version None)
Quarter: 2007Q1

REPORT INFORMATION
  Report Type: 
  Country: None (occurrence: None)
  Receive Date: 20061208
  Receipt Date: 20051206
  Transmission Date: 20070707
  Serious: Yes (Other)
  Sender: FDA-Public Use
  Company Number: 2005UW18381

PATIENT
  Age: 67 Year
  Sex: Female
  Weight: 67.131 kg

DRUGS (4)
  1. CRESTOR [Suspect]
     Indication: BLOOD CHOLESTEROL INCREASED
     Dosage: 10 MG DAILY PO
     Route: 048
     Dates: start: 20051101
  2. NIASPAN [Concomitant]
  3. ACTOS /USA/ [Concomitant]
  4. .. [Concomitant]

REACTIONS (5)
  - ABDOMINAL PAIN [None]
  - DRY MOUTH [None]
  - DYSGEUSIA [None]
  - NAUSEA [None]
  - PAIN IN EXTREMITY [None]
